FAERS Safety Report 8190511-8 (Version None)
Quarter: 2012Q1

REPORT INFORMATION
  Report Type: 
  Country: None (occurrence: None)
  Receive Date: 20120307
  Receipt Date: 20120302
  Transmission Date: 20120608
  Serious: Yes (Hospitalization)
  Sender: FDA-Public Use
  Company Number: FR-EISAI INC-E2020-10438-SPO-FR

PATIENT
  Age: 79 Year
  Sex: Female

DRUGS (5)
  1. CALCIUM CARBONATE [Concomitant]
  2. FOLIC ACID [Concomitant]
  3. ARICEPT [Suspect]
     Indication: COGNITIVE DISORDER
     Route: 048
     Dates: end: 20110401
  4. POTASSIUM CHLORIDE [Concomitant]
  5. PROTELOS [Concomitant]

REACTIONS (4)
  - DIARRHOEA [None]
  - HAEMATOCHEZIA [None]
  - COLITIS [None]
  - LIPASE INCREASED [None]
